FAERS Safety Report 8349851-1 (Version None)
Quarter: 2012Q2

REPORT INFORMATION
  Report Type: 
  Country: None (occurrence: None)
  Receive Date: 20120510
  Receipt Date: 20120427
  Transmission Date: 20120825
  Serious: Yes (Hospitalization, Other)
  Sender: FDA-Public Use
  Company Number: NL-MEDIMMUNE-MEDI-0014418

PATIENT
  Sex: Female
  Weight: 3 kg

DRUGS (5)
  1. SYNAGIS [Suspect]
     Indication: PREMATURE BABY
     Route: 030
     Dates: start: 20111208, end: 20111208
  2. SYNAGIS [Suspect]
     Route: 030
     Dates: start: 20120105, end: 20120101
  3. FERROCHLORIDE [Suspect]
     Dates: end: 20120102
  4. DAKTAIN [Concomitant]
     Dates: start: 20120101
  5. NYSTATIN [Concomitant]
     Dates: end: 20120101

REACTIONS (17)
  - HYPOPHAGIA [None]
  - RHINOVIRUS INFECTION [None]
  - DRUG INEFFECTIVE [None]
  - SOMNOLENCE [None]
  - FLUID INTAKE REDUCED [None]
  - PALLOR [None]
  - DYSPNOEA [None]
  - FAECES DISCOLOURED [None]
  - ABDOMINAL DISTENSION [None]
  - NASOPHARYNGITIS [None]
  - RESPIRATORY TRACT INFECTION [None]
  - ORAL CANDIDIASIS [None]
  - STEATORRHOEA [None]
  - SKIN DISCOLOURATION [None]
  - ABNORMAL FAECES [None]
  - TACHYPNOEA [None]
  - COUGH [None]
